FAERS Safety Report 14375957 (Version 5)
Quarter: 2024Q4

REPORT INFORMATION
  Report Type: Spontaneous
  Country: US (occurrence: US)
  Receive Date: 20180111
  Receipt Date: 20241125
  Transmission Date: 20250114
  Serious: No
  Sender: MERCK
  Company Number: US-009507513-1712USA013625

PATIENT
  Age: 71 Year
  Sex: Male

DRUGS (12)
  1. KEYTRUDA [Suspect]
     Active Substance: PEMBROLIZUMAB
     Indication: Large cell lung cancer
     Dosage: 200 MILLIGRAM, Q3W
     Route: 042
     Dates: start: 20171215
  2. KEYTRUDA [Suspect]
     Active Substance: PEMBROLIZUMAB
     Indication: Non-small cell lung cancer
     Dosage: UNK, EVERY 6 WEEKS
     Route: 042
     Dates: start: 2022
  3. MOVANTIK [Concomitant]
     Active Substance: NALOXEGOL OXALATE
     Dosage: UNK
  4. HYDROCODONE [Concomitant]
     Active Substance: HYDROCODONE
     Dosage: UNK
  5. NIFEDIPINE [Concomitant]
     Active Substance: NIFEDIPINE
     Dosage: UNK
  6. PANTOPRAZOLE [Concomitant]
     Active Substance: PANTOPRAZOLE
  7. RAMIPRIL [Concomitant]
     Active Substance: RAMIPRIL
     Dosage: 10 MILLIGRAM
  8. LEVOTHYROXINE SODIUM [Concomitant]
     Active Substance: LEVOTHYROXINE SODIUM
     Dosage: 100 MICROGRAM
  9. MELOXICAM [Concomitant]
     Active Substance: MELOXICAM
     Dosage: 7.5 MILLIGRAM
  10. CELEBREX [Concomitant]
     Active Substance: CELECOXIB
  11. FINASTERIDE [Concomitant]
     Active Substance: FINASTERIDE
  12. FUROSEMIDE [Concomitant]
     Active Substance: FUROSEMIDE

REACTIONS (12)
  - Fatigue [Unknown]
  - Pain [Not Recovered/Not Resolved]
  - Myalgia [Not Recovered/Not Resolved]
  - Radiation injury [Unknown]
  - Adverse event [Unknown]
  - Rash [Recovered/Resolved]
  - Bursitis [Unknown]
  - Balance disorder [Unknown]
  - Arthralgia [Unknown]
  - Balance disorder [Unknown]
  - Nervous system disorder [Unknown]
  - Incorrect product administration duration [Unknown]

NARRATIVE: CASE EVENT DATE: 20171215
